FAERS Safety Report 5092972-X (Version None)
Quarter: 2006Q3

REPORT INFORMATION
  Report Type: 
  Country: None (occurrence: None)
  Receive Date: 20060830
  Receipt Date: 20060731
  Transmission Date: 20061208
  Serious: Yes (Other)
  Sender: FDA-Public Use
  Company Number: US-GLAXOSMITHKLINE-A0614180A

PATIENT
  Age: 77 Year
  Sex: Male

DRUGS (4)
  1. COREG [Suspect]
     Indication: HEART VALVE REPLACEMENT
     Dosage: 25MG VARIABLE DOSE
     Route: 048
     Dates: start: 20051201
  2. MICARDIS [Concomitant]
  3. DESIPRAMINE HCL [Concomitant]
  4. NEURONTIN [Concomitant]

REACTIONS (2)
  - MACULAR DEGENERATION [None]
  - VISION BLURRED [None]
